FAERS Safety Report 7512570-5 (Version None)
Quarter: 2011Q2

REPORT INFORMATION
  Report Type: 
  Country: None (occurrence: None)
  Receive Date: 20110531
  Receipt Date: 20110523
  Transmission Date: 20111010
  Serious: Yes (Hospitalization)
  Sender: FDA-Public Use
  Company Number: US-ROCHE-779186

PATIENT
  Sex: Female
  Weight: 93.4 kg

DRUGS (1)
  1. CAPECITABINE [Suspect]
     Dosage: INDICATION: METASTATIC RIGHT LUNG CANCER. 2 WEEKS ON, 1 WEEK OFF
     Route: 048
     Dates: start: 20101201

REACTIONS (4)
  - ARTHRALGIA [None]
  - DIARRHOEA [None]
  - PULMONARY OEDEMA [None]
  - NAUSEA [None]
